FAERS Safety Report 10169161 (Version 1)
Quarter: 2014Q2

REPORT INFORMATION
  Report Type: Spontaneous
  Country: US (occurrence: US)
  Receive Date: 20140513
  Receipt Date: 20140513
  Transmission Date: 20141212
  Serious: No
  Sender: FDA-Public Use
  Company Number: US-TARO-2014P1002619

PATIENT
  Age: 3 Year
  Sex: Female
  Weight: 16.78 kg

DRUGS (3)
  1. CETIRIZINE HCL ORAL SOLUTION ALLERGY 1 MG/ML OTC [Suspect]
     Indication: SEASONAL ALLERGY
     Route: 048
     Dates: start: 201403, end: 20140322
  2. CETIRIZINE HCL ORAL SOLUTION ALLERGY 1 MG/ML OTC [Suspect]
     Indication: SEASONAL ALLERGY
     Route: 048
     Dates: start: 20140323, end: 20140323
  3. CETIRIZINE HCL ORAL SOLUTION ALLERGY 1 MG/ML OTC [Suspect]
     Indication: SEASONAL ALLERGY
     Route: 048
     Dates: start: 20140324

REACTIONS (3)
  - Drug ineffective [Unknown]
  - Incorrect dose administered [Unknown]
  - Conjunctivitis [Unknown]
